FAERS Safety Report 8240656-9 (Version None)
Quarter: 2012Q1

REPORT INFORMATION
  Report Type: 
  Country: None (occurrence: None)
  Receive Date: 20120328
  Receipt Date: 20120321
  Transmission Date: 20120608
  Serious: Yes (Other)
  Sender: FDA-Public Use
  Company Number: BR-PFIZER INC-2012074462

PATIENT
  Age: 61 Year
  Sex: Male

DRUGS (2)
  1. LYRICA [Suspect]
     Indication: MONOPLEGIA
     Dosage: 75 MG, 3X/DAY
     Route: 048
     Dates: start: 20110921
  2. ATACAND [Concomitant]
     Indication: BLOOD PRESSURE
     Dosage: 1 TABLET 2X/DAY
     Dates: start: 20110321

REACTIONS (4)
  - CEREBROVASCULAR ACCIDENT [None]
  - FATIGUE [None]
  - HYPOAESTHESIA [None]
  - PARALYSIS [None]
